FAERS Safety Report 13640226 (Version 2)
Quarter: 2017Q2

REPORT INFORMATION
  Report Type: Spontaneous
  Country: US (occurrence: US)
  Receive Date: 20170610
  Receipt Date: 20170614
  Transmission Date: 20170830
  Serious: No
  Sender: FDA-Public Use
  Company Number: US-009507513-1706USA001678

PATIENT
  Age: 29 Year
  Sex: Female
  Weight: 96.6 kg

DRUGS (2)
  1. NEXPLANON [Suspect]
     Active Substance: ETONOGESTREL
     Dosage: 1 DF,EVERY 3 YEARS; 68 MG
     Route: 059
     Dates: end: 20170407
  2. NEXPLANON [Suspect]
     Active Substance: ETONOGESTREL
     Dosage: 1 DF,EVERY 3 YEARS; 68 MG
     Route: 059
     Dates: start: 20170407

REACTIONS (2)
  - Implant site pain [Not Recovered/Not Resolved]
  - Complication associated with device [Not Recovered/Not Resolved]

NARRATIVE: CASE EVENT DATE: 2017
